FAERS Safety Report 4608578-X (Version None)
Quarter: 2005Q1

REPORT INFORMATION
  Report Type: 
  Country: None (occurrence: None)
  Receive Date: 20050315
  Receipt Date: 20050304
  Transmission Date: 20050727
  Serious: Yes (Hospitalization)
  Sender: FDA-Public Use
  Company Number: GXKR2005US00686

PATIENT
  Age: 37 Year
  Sex: Female

DRUGS (9)
  1. CLOZAPINE [Suspect]
     Dosage: 175 MG
  2. LITHIUM CARBONATE [Concomitant]
     Dosage: 1200 MG/D
  3. PERPHENAZINE [Concomitant]
     Dosage: 32 MG/D
  4. SELEGILINE HCL [Concomitant]
     Dosage: 10 MG/D
  5. LORAZEPAM [Concomitant]
     Dosage: 0.5 MG, Q2H
  6. PROPRANOLOL [Concomitant]
     Dosage: 20 MG/D
  7. DIVALPROEX SODIUM (NGX) [Suspect]
     Indication: SCHIZOAFFECTIVE DISORDER
     Dosage: 1000 MG, BID
  8. BIPERIDEN HYDROCHLORIDE TAB [Concomitant]
     Dosage: 6 MG/D
  9. ALBUTEROL SULFATE [Concomitant]
     Dosage: 2 PUFFS, QID

REACTIONS (14)
  - ALANINE AMINOTRANSFERASE INCREASED [None]
  - ASCITES [None]
  - ASPARTATE AMINOTRANSFERASE INCREASED [None]
  - ASTERIXIS [None]
  - DRUG INTERACTION [None]
  - HEPATIC ENCEPHALOPATHY [None]
  - HEPATIC FAILURE [None]
  - HEPATOTOXICITY [None]
  - HYPERBILIRUBINAEMIA [None]
  - HYPERTENSION [None]
  - HYPERTHERMIA [None]
  - LIVER TENDERNESS [None]
  - SEDATION [None]
  - TACHYCARDIA [None]
